FAERS Safety Report 18689374 (Version 1)
Quarter: 2020Q4

REPORT INFORMATION
  Report Type: Spontaneous
  Country: US (occurrence: US)
  Receive Date: 20201231
  Receipt Date: 20201231
  Transmission Date: 20210114
  Serious: No
  Sender: FDA-Public Use
  Company Number: US-SA-2020SA371243

PATIENT

DRUGS (1)
  1. ALLEGRA ALLERGY [Suspect]
     Active Substance: FEXOFENADINE HYDROCHLORIDE
     Indication: HYPERSENSITIVITY
     Dosage: UNK UNK, QD
     Dates: start: 20201120, end: 20201130

REACTIONS (4)
  - Stomatitis [Unknown]
  - Oral pain [Unknown]
  - Dry mouth [Unknown]
  - Aphthous ulcer [Unknown]
